FAERS Safety Report 6291994-0 (Version None)
Quarter: 2009Q3

REPORT INFORMATION
  Report Type: 
  Country: None (occurrence: None)
  Receive Date: 20090729
  Receipt Date: 20090715
  Transmission Date: 20100115
  Serious: Yes (Other)
  Sender: FDA-Public Use
  Company Number: 2009BM000161

PATIENT
  Age: 51 Year
  Sex: Female

DRUGS (3)
  1. KUVAN [Suspect]
     Indication: PHENYLKETONURIA
     Dosage: 1400 MG; QD; PO
     Route: 048
     Dates: start: 20080918
  2. FLUOXETINE [Concomitant]
  3. SEROQUEL [Concomitant]

REACTIONS (4)
  - ACTIVITIES OF DAILY LIVING IMPAIRED [None]
  - DISTURBANCE IN SEXUAL AROUSAL [None]
  - GAIT DISTURBANCE [None]
  - SWELLING [None]
